FAERS Safety Report 25386373 (Version 1)
Quarter: 2025Q2

REPORT INFORMATION
  Report Type: Spontaneous
  Country: US (occurrence: US)
  Receive Date: 20250602
  Receipt Date: 20250602
  Transmission Date: 20250717
  Serious: Yes (Hospitalization, Other)
  Sender: GLAXOSMITHKLINE
  Company Number: US-GLAXOSMITHKLINE INC-US2025066161

PATIENT

DRUGS (24)
  1. NUCALA [Suspect]
     Active Substance: MEPOLIZUMAB
     Indication: Eosinophilic granulomatosis with polyangiitis
     Dosage: 300 MG, Q4W
     Dates: start: 202406, end: 20250513
  2. DALIRESP [Concomitant]
     Active Substance: ROFLUMILAST
     Indication: Dyspnoea
     Dosage: 500 MG, QD
     Dates: start: 2023
  3. TRELEGY ELLIPTA [Concomitant]
     Active Substance: FLUTICASONE FUROATE\UMECLIDINIUM BROMIDE\VILANTEROL TRIFENATATE
     Indication: Asthma
     Dosage: 1 PUFF(S), QD 200 MCG/62.5/25 MCG
     Route: 055
  4. SINGULAIR [Concomitant]
     Active Substance: MONTELUKAST SODIUM
     Indication: Hypersensitivity
     Dosage: 10 MG, QD
  5. ALBUTEROL\IPRATROPIUM [Concomitant]
     Active Substance: ALBUTEROL\IPRATROPIUM
     Indication: Chronic obstructive pulmonary disease
     Dosage: UNK UNK, QD ALBUTERAL 3 MG/IPRATROPIUM 0.5 MG 4-6 HRS AS NEEDED
  6. PREDNISONE [Concomitant]
     Active Substance: PREDNISONE
     Indication: Chronic obstructive pulmonary disease
     Dosage: 2.5 MG, QD
     Dates: start: 202408
  7. ALBUTEROL SULFATE [Concomitant]
     Active Substance: ALBUTEROL SULFATE
     Indication: Chronic obstructive pulmonary disease
  8. AZELASTINE HYDROCHLORIDE [Concomitant]
     Active Substance: AZELASTINE HYDROCHLORIDE
     Indication: Chronic obstructive pulmonary disease
     Dosage: 4 PUFF(S), BID
     Dates: start: 202404
  9. NASONEX [Concomitant]
     Active Substance: MOMETASONE FUROATE
     Indication: Hypersensitivity
     Dates: start: 2022, end: 202404
  10. DILTIAZEM HYDROCHLORIDE [Concomitant]
     Active Substance: DILTIAZEM HYDROCHLORIDE
     Indication: Blood pressure measurement
     Dosage: 30 MG, TID
  11. VALSARTAN [Concomitant]
     Active Substance: VALSARTAN
     Indication: Hypertension
     Dosage: 80 MG, QD
  12. TRIAMTERENE AND HYDROCHLOROTHIAZIDE [Concomitant]
     Active Substance: HYDROCHLOROTHIAZIDE\TRIAMTERENE
     Indication: Blood pressure measurement
     Dosage: UNK UNK, QD 75/50 MG
  13. METOPROLOL TARTRATE [Concomitant]
     Active Substance: METOPROLOL TARTRATE
     Indication: Hypertension
     Dosage: 50 MG, BID
  14. ROSUVASTATIN [Concomitant]
     Active Substance: ROSUVASTATIN
     Indication: Blood cholesterol increased
     Dosage: 40 MG, QD
     Dates: start: 20250516
  15. ZOLOFT [Concomitant]
     Active Substance: SERTRALINE HYDROCHLORIDE
     Indication: Depression
     Dosage: 50 MG, QD
     Dates: start: 2008
  16. VITAMIN D3 [Concomitant]
     Active Substance: CHOLECALCIFEROL
     Indication: Vitamin D deficiency
     Dosage: UNK UNK, QD 5000 IU
  17. METFORMIN [Concomitant]
     Active Substance: METFORMIN HYDROCHLORIDE
     Indication: Diabetes mellitus
     Dosage: 500 MG, QD
     Dates: end: 20250516
  18. JARDIANCE [Concomitant]
     Active Substance: EMPAGLIFLOZIN
     Indication: Diabetes mellitus
     Dosage: 10 MG, QD
     Dates: start: 20250516
  19. FAMOTIDINE [Concomitant]
     Active Substance: FAMOTIDINE
     Indication: Gastrooesophageal reflux disease
     Dosage: 200 MG, BID
  20. MUCINEX [Concomitant]
     Active Substance: GUAIFENESIN
     Indication: Pulmonary congestion
     Dosage: UNK UNK, BID REGULAR DOSE
  21. IRON [Concomitant]
     Active Substance: IRON
     Indication: Anaemia
     Dosage: UNK UNK, TID  65/325
  22. HERBALS [Concomitant]
     Active Substance: HERBALS
     Indication: Influenza
  23. CALCIUM [Concomitant]
     Active Substance: CALCIUM
     Indication: Bone loss
     Dosage: 600 MG, BID
  24. FISH OIL [Concomitant]
     Active Substance: FISH OIL
     Indication: Blood cholesterol
     Dosage: 1000 MG, BID
     Dates: start: 202505

REACTIONS (3)
  - Lactic acidosis [Unknown]
  - Renal impairment [Unknown]
  - Respiratory failure [Unknown]

NARRATIVE: CASE EVENT DATE: 20250502
